FAERS Safety Report 8900559 (Version 1)
Quarter: 2012Q4

REPORT INFORMATION
  Report Type: 
  Country: CA (occurrence: CA)
  Receive Date: 20121109
  Receipt Date: 20121109
  Transmission Date: 20130627
  Serious: Yes (Other)
  Sender: FDA-Public Use
  Company Number: PHMT2006CA01498

PATIENT
  Sex: Male

DRUGS (7)
  1. SANDOSTATIN LAR [Suspect]
     Indication: ACROMEGALY
     Dosage: 10 mg, once a month
     Dates: start: 20050303
  2. ASA [Concomitant]
  3. LIPITOR [Concomitant]
  4. METFORMIN HYDROCHLORIDE [Concomitant]
  5. NITRO-SPRAY [Concomitant]
  6. NOVO-FOSINOPRIL [Concomitant]
  7. RHOXAL-BISOPROLOL [Concomitant]

REACTIONS (11)
  - Prostate cancer [Unknown]
  - Hypotension [Unknown]
  - Road traffic accident [Unknown]
  - Injury [Unknown]
  - Diabetes mellitus [Unknown]
  - Jaundice [Unknown]
  - Hypoglycaemia [Unknown]
  - Arthralgia [Unknown]
  - Injection site reaction [Unknown]
  - Oropharyngeal pain [Unknown]
  - Heart rate decreased [Unknown]
